FAERS Safety Report 6595937-1 (Version None)
Quarter: 2010Q1

REPORT INFORMATION
  Report Type: 
  Country: None (occurrence: None)
  Receive Date: 20100223
  Receipt Date: 20100211
  Transmission Date: 20100710
  Serious: Yes (Death, Hospitalization)
  Sender: FDA-Public Use
  Company Number: GB-ELI_LILLY_AND_COMPANY-GB201002003424

PATIENT
  Age: 28 Year
  Sex: Male

DRUGS (1)
  1. ZYPREXA [Suspect]
     Dosage: 10 MG, UNKNOWN
     Route: 065

REACTIONS (3)
  - CONVULSION [None]
  - DEATH [None]
  - LOSS OF CONSCIOUSNESS [None]
